FAERS Safety Report 8905409 (Version 1)
Quarter: 2012Q4

REPORT INFORMATION
  Report Type: 
  Country: BR (occurrence: BR)
  Receive Date: 20121109
  Receipt Date: 20121109
  Transmission Date: 20130627
  Serious: Yes (Other)
  Sender: FDA-Public Use
  Company Number: BR-PFIZER INC-2012278563

PATIENT
  Age: 72 Year
  Sex: Female
  Weight: 76.8 kg

DRUGS (1)
  1. CELEBRA [Suspect]
     Indication: KNEE PAIN
     Dosage: 1 capsule (200 mg), alternate days
     Route: 048
     Dates: start: 2011

REACTIONS (3)
  - Diabetes mellitus [Unknown]
  - Blood pressure increased [Unknown]
  - Feeling abnormal [Unknown]
